FAERS Safety Report 22925749 (Version 3)
Quarter: 2023Q4

REPORT INFORMATION
  Report Type: Report from Study
  Country: JP (occurrence: JP)
  Receive Date: 20230908
  Receipt Date: 20231009
  Transmission Date: 20240110
  Serious: Yes (Life-Threatening, Hospitalization)
  Sender: FDA-Public Use
  Company Number: JP-GENMAB-2023-00500

PATIENT
  Age: 65 Year
  Sex: Male
  Weight: 53 kg

DRUGS (61)
  1. EPCORITAMAB [Suspect]
     Active Substance: EPCORITAMAB
     Indication: Diffuse large B-cell lymphoma stage I
     Dosage: C1D1
     Route: 058
     Dates: start: 20211007, end: 20211007
  2. EPCORITAMAB [Suspect]
     Active Substance: EPCORITAMAB
     Dosage: C1D8
     Route: 058
     Dates: start: 20211014, end: 20211014
  3. EPCORITAMAB [Suspect]
     Active Substance: EPCORITAMAB
     Dosage: C1D15 - C3D22
     Route: 058
     Dates: start: 20211021, end: 20211223
  4. EPCORITAMAB [Suspect]
     Active Substance: EPCORITAMAB
     Dosage: C4D1 - C9D15
     Route: 058
     Dates: start: 20220106, end: 20220609
  5. EPCORITAMAB [Suspect]
     Active Substance: EPCORITAMAB
     Dosage: C10D1 - C11D1
     Route: 058
     Dates: start: 20220623, end: 20220711
  6. EPCORITAMAB [Suspect]
     Active Substance: EPCORITAMAB
     Dosage: RE-PRIME EPCORITAMAB DAY 1
     Route: 058
     Dates: start: 20220905, end: 20220905
  7. EPCORITAMAB [Suspect]
     Active Substance: EPCORITAMAB
     Dosage: RE-PRIME EPCORITAMAB DAY 8
     Route: 058
     Dates: start: 20220912, end: 20220912
  8. EPCORITAMAB [Suspect]
     Active Substance: EPCORITAMAB
     Dosage: RE-PRIME EPCORITAMAB DAY 15 - DAY 22
     Route: 058
     Dates: start: 20220920, end: 20220927
  9. EPCORITAMAB [Suspect]
     Active Substance: EPCORITAMAB
     Dosage: C12D1 - C16D1
     Route: 058
     Dates: start: 20221025, end: 20230221
  10. ACETAMINOPHEN [Concomitant]
     Active Substance: ACETAMINOPHEN
     Indication: Premedication
     Route: 048
     Dates: start: 20230221, end: 20230221
  11. DIPHENHYDRAMINE HYDROCHLORIDE [Concomitant]
     Active Substance: DIPHENHYDRAMINE HYDROCHLORIDE
     Indication: Premedication
     Dosage: 50 MILLIGRAM, SINGLE
     Route: 048
     Dates: start: 20230221, end: 20230221
  12. ACYCLOVIR [Concomitant]
     Active Substance: ACYCLOVIR
     Indication: Prophylaxis
     Dosage: 200 MILLIGRAM, QD (QAM)
     Route: 048
     Dates: start: 20220203
  13. ATOVAQUONE [Concomitant]
     Active Substance: ATOVAQUONE
     Indication: Prophylaxis
     Dosage: 10 MILLILITER, QD (QAM)
     Route: 048
     Dates: start: 20230407
  14. BEPOTASTINE BESYLATE [Concomitant]
     Active Substance: BEPOTASTINE BESYLATE
     Indication: Prophylaxis
     Dosage: 10 MILLIGRAM, PRN
     Route: 048
     Dates: start: 20230406, end: 20230408
  15. AMINO ACIDS\DEXTROSE\ELECTROLYTES NOS\VITAMINS [Concomitant]
     Active Substance: AMINO ACIDS\DEXTROSE\ELECTROLYTES NOS\VITAMINS
     Indication: Fluid replacement
     Dosage: 500 ML, PRN
     Route: 042
     Dates: start: 20230324, end: 20230420
  16. CARBOCYSTEINE [Concomitant]
     Active Substance: CARBOCYSTEINE
     Indication: Cough
     Dosage: 500 MILLIGRAM, PRN
     Route: 048
     Dates: start: 20220711, end: 20230324
  17. CARBOCYSTEINE [Concomitant]
     Active Substance: CARBOCYSTEINE
     Dosage: 1500 MILLIGRAM, TID
     Route: 048
     Dates: start: 20230402
  18. DEXTROMETHORPHAN HYDROBROMIDE [Concomitant]
     Active Substance: DEXTROMETHORPHAN HYDROBROMIDE
     Indication: Cough
     Dosage: 15 MILLIGRAM, PRN
     Route: 048
     Dates: start: 20220623, end: 20230324
  19. DEXTROMETHORPHAN HYDROBROMIDE [Concomitant]
     Active Substance: DEXTROMETHORPHAN HYDROBROMIDE
     Dosage: 45 MILLIGRAM, TID
     Route: 048
     Dates: start: 20230402
  20. ESZOPICLONE [Concomitant]
     Active Substance: ESZOPICLONE
     Dosage: 1 MILLIGRAM, PRN
     Route: 048
     Dates: start: 20211025
  21. FENTANYL CITRATE [Concomitant]
     Active Substance: FENTANYL CITRATE
     Indication: Sedation
     Dosage: 0.5 MILLIGRAM, INTERMITTENT
     Route: 042
     Dates: start: 20230324, end: 20230327
  22. FILGRASTIM [Concomitant]
     Active Substance: FILGRASTIM
     Dosage: 75 MICROGRAM, QD
     Route: 058
     Dates: start: 20230408, end: 20230410
  23. FILGRASTIM [Concomitant]
     Active Substance: FILGRASTIM
     Dosage: 75 MICROGRAM, PRN
     Route: 058
     Dates: start: 20230602, end: 20230603
  24. HEMOPORISON [Concomitant]
     Indication: Prophylaxis
     Dosage: UNK, PRN
     Route: 061
     Dates: start: 20230517
  25. HYDROXYZINE HYDROCHLORIDE [Concomitant]
     Active Substance: HYDROXYZINE HYDROCHLORIDE
     Indication: Sedation
     Dosage: 25 MILLIGRAM, SINGLE
     Route: 030
     Dates: start: 20230328, end: 20230328
  26. MAGNESIUM CITRATE [Concomitant]
     Active Substance: MAGNESIUM CITRATE
     Indication: Prophylaxis
     Dosage: 68 PERCENT, SINGLE
     Route: 048
     Dates: start: 20230524, end: 20230524
  27. MAGNESIUM SULFATE [Concomitant]
     Active Substance: MAGNESIUM SULFATE
     Indication: Fluid replacement
     Dosage: 20 MILLIEQUIVALENT, PRN
     Route: 042
     Dates: start: 20230605, end: 20230605
  28. MENATETRENONE [Concomitant]
     Active Substance: MENATETRENONE
     Indication: Hormone replacement therapy
     Dosage: 10 MILLIGRAM, QD
     Route: 042
     Dates: start: 20230324, end: 20230403
  29. MIDAZOLAM [Concomitant]
     Active Substance: MIDAZOLAM
     Indication: Sedation
     Dosage: 10 MILLIGRAM, INTERMITTENT
     Route: 042
     Dates: start: 20230324, end: 20230327
  30. AMMONIUM GLYCYRRHIZATE [Concomitant]
     Active Substance: AMMONIUM GLYCYRRHIZATE
     Indication: Hepatic function abnormal
     Dosage: 6 TABLET, TID
     Route: 048
     Dates: start: 20230410, end: 20230414
  31. AMMONIUM GLYCYRRHIZATE [Concomitant]
     Active Substance: AMMONIUM GLYCYRRHIZATE
     Dosage: 40 MILLILITER, QD
     Route: 042
     Dates: start: 20230413, end: 20230417
  32. MOXIFLOXACIN HYDROCHLORIDE [Concomitant]
     Active Substance: MOXIFLOXACIN HYDROCHLORIDE\MOXIFLOXACIN HYDROCHLORIDE MONOHYDRATE
     Indication: Cough
     Dosage: 400 MILLIGRAM, PRN
     Route: 048
     Dates: start: 20220808, end: 20230322
  33. NEOPHAGEN [CYSTEINE;GLYCINE;GLYCYRRHIZIC ACID] [Concomitant]
     Indication: Hepatic function abnormal
     Dosage: 40 MILLILITER, SINGLE
     Route: 042
     Dates: start: 20230601, end: 20230602
  34. NOREPINEPHRINE [Concomitant]
     Active Substance: NOREPINEPHRINE
     Indication: Prophylaxis
     Dosage: 1 MG, INTERMITTENT
     Route: 042
     Dates: start: 20230325, end: 20230327
  35. POTASSIUM ASPARTATE [Concomitant]
     Active Substance: POTASSIUM ASPARTATE
     Indication: Fluid replacement
     Dosage: 10 MILLIEQUIVALENT, PRN
     Route: 042
     Dates: start: 20230530, end: 20230609
  36. POTASSIUM CHLORIDE [Concomitant]
     Active Substance: POTASSIUM CHLORIDE
     Indication: Fluid replacement
     Dosage: 1200 MILLIGRAM, BID
     Route: 048
     Dates: start: 20230323, end: 20230323
  37. POTASSIUM CHLORIDE [Concomitant]
     Active Substance: POTASSIUM CHLORIDE
     Dosage: 20 MILLILITER, QD
     Route: 042
     Dates: start: 20230415, end: 20230425
  38. POTASSIUM CHLORIDE [Concomitant]
     Active Substance: POTASSIUM CHLORIDE
     Dosage: 1800 MILLIGRAM, TID
     Route: 048
     Dates: start: 20230410
  39. POTASSIUM CHLORIDE [Concomitant]
     Active Substance: POTASSIUM CHLORIDE
     Dosage: 20 MILLIEQUIVALENT, PRN
     Route: 042
     Dates: start: 20230607, end: 20230611
  40. PRIVIGEN [Concomitant]
     Active Substance: HUMAN IMMUNOGLOBULIN G
     Indication: Prophylaxis
     Dosage: 15 GRAM, SINGLE
     Route: 042
     Dates: start: 20230516, end: 20230516
  41. PRIVIGEN [Concomitant]
     Active Substance: HUMAN IMMUNOGLOBULIN G
     Dosage: 30 GRAM, SINGLE
     Route: 042
     Dates: start: 20230601, end: 20230601
  42. ROCURONIUM BROMIDE [Concomitant]
     Active Substance: ROCURONIUM BROMIDE
     Indication: Sedation
     Dosage: 50 MILLIGRAM, SINGLE
     Route: 042
     Dates: start: 20230324, end: 20230324
  43. ROXATIDINE ACETATE HYDROCHLORIDE [Concomitant]
     Active Substance: ROXATIDINE ACETATE HYDROCHLORIDE
     Indication: Prophylaxis
     Dosage: 150 MILLIGRAM, BID
     Route: 048
     Dates: start: 20211005
  44. SENNOSIDES A AND B [Concomitant]
     Active Substance: SENNOSIDES A AND B
     Indication: Prophylaxis
     Dosage: 24 MILLIGRAM, SINGLE
     Route: 048
     Dates: start: 20230523, end: 20230523
  45. SODIUM CHLORIDE [Concomitant]
     Active Substance: SODIUM CHLORIDE
     Indication: Fluid replacement
     Dosage: 20 MILLILITER, SINGLE
     Route: 042
     Dates: start: 20230331, end: 20230331
  46. SODIUM CHLORIDE [Concomitant]
     Active Substance: SODIUM CHLORIDE
     Dosage: 250 MILLILITER, PRN
     Route: 042
     Dates: start: 20230512, end: 20230609
  47. SODIUM PICOSULFATE [Concomitant]
     Active Substance: SODIUM PICOSULFATE
     Indication: Prophylaxis
     Dosage: 0.75 PERCENT, SINGLE
     Route: 048
     Dates: start: 20230523, end: 20230523
  48. CALCIUM CHLORIDE\POTASSIUM CHLORIDE\SODIUM ACETATE\SODIUM CHLORIDE [Concomitant]
     Active Substance: CALCIUM CHLORIDE\POTASSIUM CHLORIDE\SODIUM ACETATE\SODIUM CHLORIDE
     Indication: Fluid replacement
     Dosage: 500 MILLILITER, PRN
     Route: 042
     Dates: start: 20230324, end: 20230410
  49. CALCIUM CHLORIDE\POTASSIUM CHLORIDE\SODIUM ACETATE\SODIUM CHLORIDE [Concomitant]
     Active Substance: CALCIUM CHLORIDE\POTASSIUM CHLORIDE\SODIUM ACETATE\SODIUM CHLORIDE
     Dosage: 500 MILLILITER, PRN
     Route: 042
     Dates: start: 20230524, end: 20230611
  50. DEXTROSE\SODIUM CHLORIDE\SODIUM LACTATE [Concomitant]
     Active Substance: DEXTROSE\SODIUM CHLORIDE\SODIUM LACTATE
     Indication: Fluid replacement
     Dosage: 500 MILLILITER, PRN
     Route: 042
     Dates: start: 20230516, end: 20230516
  51. SOLDEM 3A [Concomitant]
     Active Substance: CARBOHYDRATES\POTASSIUM CHLORIDE\SODIUM CHLORIDE\SODIUM LACTATE
     Indication: Fluid replacement
     Dosage: 500 MILLILITER, PRN
     Route: 042
     Dates: start: 20230516, end: 20230602
  52. SOLDEM 3A [Concomitant]
     Active Substance: CARBOHYDRATES\POTASSIUM CHLORIDE\SODIUM CHLORIDE\SODIUM LACTATE
     Dosage: 250 MILLILITER, PRN
     Route: 042
     Dates: start: 20230518, end: 20230518
  53. SOLDEM 3AG [Concomitant]
     Indication: Fluid replacement
     Dosage: 500 MILLILITER, PRN
     Route: 042
     Dates: start: 20230601, end: 20230602
  54. SULFAMETHOXAZOLE\TRIMETHOPRIM [Concomitant]
     Active Substance: SULFAMETHOXAZOLE\TRIMETHOPRIM
     Dosage: 1 TABLET, QD (QAM)
     Route: 048
     Dates: start: 20211005, end: 20230321
  55. SULFAMETHOXAZOLE\TRIMETHOPRIM [Concomitant]
     Active Substance: SULFAMETHOXAZOLE\TRIMETHOPRIM
     Dosage: 9 TABLET, TID
     Route: 048
     Dates: start: 20230322, end: 20230403
  56. SULFAMETHOXAZOLE\TRIMETHOPRIM [Concomitant]
     Active Substance: SULFAMETHOXAZOLE\TRIMETHOPRIM
     Dosage: 1 TABLET, QD (QAM)
     Route: 048
     Dates: start: 20230404, end: 20230406
  57. TEPRENONE [Concomitant]
     Active Substance: TEPRENONE
     Indication: Prophylaxis
     Dosage: 1.5 GRAM, TID
     Route: 048
     Dates: start: 20211005, end: 20230324
  58. TIPEPIDINE HIBENZATE [Concomitant]
     Active Substance: TIPEPIDINE HIBENZATE
     Indication: Bronchitis
     Dosage: 0.4 GRAM, PRN
     Route: 048
     Dates: start: 20221122, end: 20230324
  59. URSODIOL [Concomitant]
     Active Substance: URSODIOL
     Indication: Hepatic function abnormal
     Dosage: 600 MILLIGRAM, TID
     Route: 048
     Dates: start: 20230410, end: 20230425
  60. URSODIOL [Concomitant]
     Active Substance: URSODIOL
     Indication: Hepatic function abnormal
     Dosage: 600 MILLIGRAM, TID
     Route: 048
     Dates: start: 20230601, end: 20230606
  61. LEVALLORPHAN TARTRATE;PETHIDINE [Concomitant]
     Indication: Sedation
     Dosage: 1 MILLILITER, PRN
     Route: 042
     Dates: start: 20230524, end: 20230601

REACTIONS (4)
  - Sepsis [Recovered/Resolved]
  - Interstitial lung disease [Not Recovered/Not Resolved]
  - Pneumonia fungal [Not Recovered/Not Resolved]
  - Anaemia [Not Recovered/Not Resolved]

NARRATIVE: CASE EVENT DATE: 20230322
